FAERS Safety Report 7307595-9 (Version None)
Quarter: 2011Q1

REPORT INFORMATION
  Report Type: 
  Country: None (occurrence: None)
  Receive Date: 20110223
  Receipt Date: 20110215
  Transmission Date: 20110831
  Serious: Yes (Other)
  Sender: FDA-Public Use
  Company Number: US-B.I. PHARMACEUTICALS,INC./RIDGEFIELD-2011-BP-03067BP

PATIENT
  Age: 45 Year
  Sex: Male

DRUGS (3)
  1. DULCOLAX [Suspect]
     Indication: BOWEL PREPARATION
     Dosage: 5 MG
     Route: 048
     Dates: start: 20110131
  2. MIRALAX [Suspect]
     Indication: BOWEL PREPARATION
     Route: 048
     Dates: start: 20110131
  3. BENADRYL [Suspect]
     Indication: PROCEDURAL SITE REACTION

REACTIONS (9)
  - SWOLLEN TONGUE [None]
  - RASH [None]
  - TONGUE BLISTERING [None]
  - PRURITUS [None]
  - PROCEDURAL SITE REACTION [None]
  - FATIGUE [None]
  - OVERDOSE [None]
  - ERYTHEMA [None]
  - ABNORMAL BEHAVIOUR [None]
